FAERS Safety Report 18230252 (Version 2)
Quarter: 2020Q4

REPORT INFORMATION
  Report Type: Spontaneous
  Country: DE (occurrence: DE)
  Receive Date: 20200903
  Receipt Date: 20201012
  Transmission Date: 20210113
  Serious: Yes (Death, Life-Threatening, Hospitalization, Other)
  Sender: FDA-Public Use
  Company Number: DE-ELI_LILLY_AND_COMPANY-DE202008012469

PATIENT
  Age: 0 Year
  Sex: Male
  Weight: 69 kg

DRUGS (16)
  1. ORFIRIL [Suspect]
     Active Substance: VALPROATE SODIUM
     Indication: PRODUCT USED FOR UNKNOWN INDICATION
     Dosage: 150MG/DAY TO 900MG/DAY
     Route: 048
     Dates: start: 20060320, end: 20060530
  2. ZELDOX [Suspect]
     Active Substance: ZIPRASIDONE
     Indication: DEMENTIA
     Route: 048
     Dates: start: 20060516, end: 20060519
  3. JONOSTERIL BAS [Concomitant]
     Indication: PRODUCT USED FOR UNKNOWN INDICATION
     Dosage: 1500 ML, DAILY
     Route: 042
     Dates: start: 20060527, end: 20060530
  4. ROCEPHIN [Concomitant]
     Active Substance: CEFTRIAXONE SODIUM
     Indication: PRODUCT USED FOR UNKNOWN INDICATION
     Dosage: 2000 MG, DAILY
     Route: 042
     Dates: start: 20060527, end: 20060530
  5. ALNA [Concomitant]
     Active Substance: TAMSULOSIN HYDROCHLORIDE
     Indication: PRODUCT USED FOR UNKNOWN INDICATION
     Route: 048
     Dates: end: 20060530
  6. ALLOPURINOL. [Concomitant]
     Active Substance: ALLOPURINOL
     Indication: PRODUCT USED FOR UNKNOWN INDICATION
     Route: 048
     Dates: end: 20060530
  7. CLONIDIN [Concomitant]
     Active Substance: CLONIDINE
     Indication: PRODUCT USED FOR UNKNOWN INDICATION
     Route: 048
     Dates: end: 20060530
  8. CORVATON [Concomitant]
     Active Substance: MOLSIDOMINE
     Indication: PRODUCT USED FOR UNKNOWN INDICATION
     Route: 048
     Dates: end: 20060530
  9. CIBADREX [Concomitant]
     Active Substance: BENAZEPRIL HYDROCHLORIDE
     Indication: PRODUCT USED FOR UNKNOWN INDICATION
     Route: 048
     Dates: end: 20060530
  10. ZYPREXA [Suspect]
     Active Substance: OLANZAPINE
     Indication: PRODUCT USED FOR UNKNOWN INDICATION
     Dosage: 5 MG, DAILY
     Route: 048
     Dates: start: 20060527, end: 20060530
  11. ZYPREXA [Suspect]
     Active Substance: OLANZAPINE
     Indication: PRODUCT USED FOR UNKNOWN INDICATION
     Dosage: 2.5 MG, DAILY
     Route: 048
     Dates: start: 20060524, end: 20060526
  12. ZELDOX [Suspect]
     Active Substance: ZIPRASIDONE
     Indication: DEMENTIA
     Route: 048
     Dates: start: 20060503, end: 20060507
  13. AMBROXOL [Concomitant]
     Active Substance: AMBROXOL
     Indication: PRODUCT USED FOR UNKNOWN INDICATION
     Dosage: 15 MG, DAILY
     Route: 042
     Dates: start: 20060527, end: 20060530
  14. ZELDOX [Suspect]
     Active Substance: ZIPRASIDONE
     Indication: DEMENTIA
     Route: 048
     Dates: start: 20060508, end: 20060515
  15. ZELDOX [Suspect]
     Active Substance: ZIPRASIDONE
     Indication: DEMENTIA
     Route: 048
     Dates: start: 20060520, end: 20060522
  16. ASPIRIN. [Concomitant]
     Active Substance: ASPIRIN
     Indication: PRODUCT USED FOR UNKNOWN INDICATION
     Route: 048
     Dates: end: 20060530

REACTIONS (3)
  - Dyskinesia [Recovered/Resolved]
  - Pneumonia [Fatal]
  - Camptocormia [Recovered/Resolved]

NARRATIVE: CASE EVENT DATE: 20060521
